FAERS Safety Report 21623005 (Version 1)
Quarter: 2022Q4

REPORT INFORMATION
  Report Type: Spontaneous
  Country: FR (occurrence: FR)
  Receive Date: 20221121
  Receipt Date: 20221121
  Transmission Date: 20230112
  Serious: Yes (Life-Threatening)
  Sender: FDA-Public Use
  Company Number: None

PATIENT
  Age: 42 Year
  Sex: Female
  Weight: 63 kg

DRUGS (4)
  1. NOREPINEPHRINE\NOREPINEPHRINE BITARTRATE [Suspect]
     Active Substance: NOREPINEPHRINE\NOREPINEPHRINE BITARTRATE
     Indication: Induction of anaesthesia
     Dosage: NOT REPORTED
     Route: 042
     Dates: start: 20220826, end: 20220827
  2. EPHEDRINE [Suspect]
     Active Substance: EPHEDRINE
     Indication: Anaphylactic shock
     Dosage: 3 BOLUS AU TOTAL
     Route: 042
     Dates: start: 20220825, end: 20220825
  3. EPINEPHRINE [Suspect]
     Active Substance: EPINEPHRINE
     Indication: Anaphylactic shock
     Dosage: 15 MILLIGRAM, UP TO 15 MG/H
     Route: 042
     Dates: start: 20220825, end: 20220826
  4. DESOGESTREL [Concomitant]
     Active Substance: DESOGESTREL
     Route: 065

REACTIONS (2)
  - Cardiac failure [Recovered/Resolved]
  - Stress cardiomyopathy [Recovered/Resolved]

NARRATIVE: CASE EVENT DATE: 20220826
